FAERS Safety Report 12633261 (Version 2)
Quarter: 2016Q3

REPORT INFORMATION
  Report Type: Spontaneous
  Country: US (occurrence: US)
  Receive Date: 20160808
  Receipt Date: 20160808
  Transmission Date: 20161109
  Serious: No
  Sender: FDA-Public Use
  Company Number: US-BEH-2016060197

PATIENT
  Sex: Female
  Weight: 94 kg

DRUGS (18)
  1. FUROSEMIDE. [Concomitant]
     Active Substance: FUROSEMIDE
  2. SYNTHROID [Concomitant]
     Active Substance: LEVOTHYROXINE SODIUM
  3. FLOVENT [Concomitant]
     Active Substance: FLUTICASONE PROPIONATE
  4. ATENOLOL. [Concomitant]
     Active Substance: ATENOLOL
  5. POTASSIUM [Concomitant]
     Active Substance: POTASSIUM
  6. BIOTIN [Concomitant]
     Active Substance: BIOTIN
  7. HIZENTRA [Suspect]
     Active Substance: HUMAN IMMUNOGLOBULIN G
     Route: 058
     Dates: start: 20150123
  8. SINGULAIR [Concomitant]
     Active Substance: MONTELUKAST SODIUM
  9. ATROVENT [Concomitant]
     Active Substance: IPRATROPIUM BROMIDE
  10. HIZENTRA [Suspect]
     Active Substance: HUMAN IMMUNOGLOBULIN G
     Route: 058
  11. PROPAFENONE. [Concomitant]
     Active Substance: PROPAFENONE
  12. VITAMIN D [Concomitant]
     Active Substance: CHOLECALCIFEROL
  13. ACETAMINOPHEN. [Concomitant]
     Active Substance: ACETAMINOPHEN
  14. TRAMADOL. [Concomitant]
     Active Substance: TRAMADOL
  15. PREVACID [Concomitant]
     Active Substance: LANSOPRAZOLE
  16. DIPHENHYDRAMINE. [Concomitant]
     Active Substance: DIPHENHYDRAMINE
  17. BENICAR [Concomitant]
     Active Substance: OLMESARTAN MEDOXOMIL
  18. HIZENTRA [Suspect]
     Active Substance: HUMAN IMMUNOGLOBULIN G
     Indication: HYPOGAMMAGLOBULINAEMIA
     Route: 058

REACTIONS (1)
  - Sinusitis [Unknown]
